FAERS Safety Report 6942328-7 (Version None)
Quarter: 2010Q3

REPORT INFORMATION
  Report Type: 
  Country: None (occurrence: None)
  Receive Date: 20100826
  Receipt Date: 20100823
  Transmission Date: 20110219
  Serious: Yes (Hospitalization, Other)
  Sender: FDA-Public Use
  Company Number: US-BRISTOL-MYERS SQUIBB COMPANY-15249998

PATIENT
  Age: 33 Year
  Sex: Female

DRUGS (3)
  1. COUMADIN [Suspect]
     Dosage: 2004 DOSAGE INCREASED
     Dates: start: 20010101, end: 20040101
  2. LOVENOX [Suspect]
     Indication: DEEP VEIN THROMBOSIS
     Dosage: 1 DF=120MG/ML. STARTED AS 100MG,INCREASED TO 120 MG(2004) AND AGAIN INCREASED TO 145 MG
     Route: 058
     Dates: start: 20050101
  3. HEPARIN [Concomitant]

REACTIONS (3)
  - CEREBRAL THROMBOSIS [None]
  - HEADACHE [None]
  - THROMBOSIS [None]
